FAERS Safety Report 5004512-1 (Version None)
Quarter: 2006Q2

REPORT INFORMATION
  Report Type: 
  Country: None (occurrence: None)
  Receive Date: 20060516
  Receipt Date: 20060516
  Transmission Date: 20061013
  Serious: Yes (Disabling)
  Sender: FDA-Public Use
  Company Number: None

PATIENT
  Age: 78 Year
  Sex: Male
  Weight: 68.0396 kg

DRUGS (4)
  1. BACTRIM [Suspect]
     Indication: PROSTATITIS
     Dosage: BACTRIM 800/160MG TAB 1 BID
     Dates: start: 20051215, end: 20051217
  2. HYDROCHLORIZIDE [Concomitant]
  3. AVAPRO [Concomitant]
  4. NEXIUM [Concomitant]

REACTIONS (12)
  - BLOOD CHLORIDE DECREASED [None]
  - BLOOD PRESSURE INADEQUATELY CONTROLLED [None]
  - DRUG TOXICITY [None]
  - FATIGUE [None]
  - HYPONATRAEMIA [None]
  - NEOPLASM PROSTATE [None]
  - PHARMACEUTICAL PRODUCT COMPLAINT [None]
  - PROSTATITIS [None]
  - RENAL IMPAIRMENT [None]
  - SINUSITIS [None]
  - THERAPEUTIC PRODUCT CONTAMINATION [None]
  - THERAPEUTIC RESPONSE UNEXPECTED WITH DRUG SUBSTITUTION [None]
